FAERS Safety Report 20877764 (Version 4)
Quarter: 2022Q3

REPORT INFORMATION
  Report Type: Report from Study
  Country: CN (occurrence: None)
  Receive Date: 20220526
  Receipt Date: 20220727
  Transmission Date: 20221027
  Serious: Yes (Hospitalization, Other)
  Sender: FDA-Public Use
  Company Number: 2022A198842

PATIENT
  Age: 58 Year
  Sex: Male
  Weight: 60 kg

DRUGS (11)
  1. DURVALUMAB [Suspect]
     Active Substance: DURVALUMAB
     Indication: Non-small cell lung cancer
     Route: 065
     Dates: start: 20201216, end: 20201216
  2. CARBOPLATIN [Suspect]
     Active Substance: CARBOPLATIN
     Indication: Non-small cell lung cancer
     Dosage: 531 MG ON 04-SEP-2020 223 MG ON 06-NOV-2020
     Route: 065
     Dates: start: 20200904, end: 20201106
  3. PACLITAXEL [Suspect]
     Active Substance: PACLITAXEL
     Indication: Non-small cell lung cancer
     Dosage: 297 MG ON 04-SEP-2020 76.2 MG ON 06-NOV-2020
     Route: 065
     Dates: start: 20200904, end: 20201106
  4. TERBUTALINE SULFATE [Concomitant]
     Active Substance: TERBUTALINE SULFATE
     Indication: Product used for unknown indication
     Dosage: 5 MILLIGRAM, BID
     Route: 055
     Dates: start: 20200906
  5. METFORMIN HYDROCHLORIDE [Concomitant]
     Active Substance: METFORMIN HYDROCHLORIDE
     Indication: Product used for unknown indication
     Dosage: EVERY 12 HOURS
     Route: 048
     Dates: start: 2005
  6. EPALRESTAT [Concomitant]
     Active Substance: EPALRESTAT
     Indication: Product used for unknown indication
     Dosage: 50 MILLIGRAM, BID
     Route: 048
     Dates: start: 2005
  7. ETHAMSYLATE [Concomitant]
     Active Substance: ETHAMSYLATE
     Indication: Product used for unknown indication
     Dosage: 0.5 G AD LIBITUM
     Route: 042
     Dates: start: 20201207, end: 20201214
  8. BECLOMETHASONE DIPROPIONATE [Concomitant]
     Active Substance: BECLOMETHASONE DIPROPIONATE
     Indication: Product used for unknown indication
     Dosage: 250 MICROGRAM, BID
     Route: 055
     Dates: start: 20200906
  9. IPRATROPIUM BROMIDE [Concomitant]
     Active Substance: IPRATROPIUM BROMIDE
     Indication: Product used for unknown indication
     Dosage: 250 MICROGRAM, BID
     Route: 055
     Dates: start: 20200906
  10. ALCOHOL [Concomitant]
     Active Substance: ALCOHOL
     Indication: Product used for unknown indication
     Dosage: 0.5 G DAILY; PER DAY
     Route: 042
     Dates: start: 20201216, end: 20201229
  11. SUCRALFATE [Concomitant]
     Active Substance: SUCRALFATE
     Indication: Product used for unknown indication
     Dosage: 1 GRAM, QD
     Route: 048
     Dates: start: 20201014

REACTIONS (1)
  - Bronchial haemorrhage [Recovered/Resolved]

NARRATIVE: CASE EVENT DATE: 20201216
